FAERS Safety Report 14994092 (Version 1)
Quarter: 2018Q2

REPORT INFORMATION
  Report Type: Spontaneous
  Country: DE (occurrence: DE)
  Receive Date: 20180611
  Receipt Date: 20180611
  Transmission Date: 20180711
  Serious: Yes (Hospitalization)
  Sender: FDA-Public Use
  Company Number: DE-TEVA-2018-DE-904647

PATIENT
  Age: 55 Year
  Sex: Male
  Weight: 94 kg

DRUGS (8)
  1. VALSARTAN. [Concomitant]
     Active Substance: VALSARTAN
     Dosage: 1-0-1-0,
     Route: 048
  2. AMLODIPINE [Concomitant]
     Active Substance: AMLODIPINE BESYLATE
     Dosage: 1-0-0-0,
     Route: 048
  3. VIGANTOLETTEN 1000I.E. [Concomitant]
     Dosage: 1000 IE, 1-0-0-0,
     Route: 048
  4. METOPROLOL. [Concomitant]
     Active Substance: METOPROLOL
     Dosage: 1-0-1-0,
     Route: 048
  5. BENZBROMARONE [Concomitant]
     Active Substance: BENZBROMARONE
     Dosage: 1-0-0-0,
     Route: 048
  6. TORASEMID [Concomitant]
     Active Substance: TORSEMIDE
     Dosage: 2-1-0-0,
     Route: 048
  7. PREDNISOLONE. [Suspect]
     Active Substance: PREDNISOLONE
     Dosage: 1-0-0-0,
     Route: 048
  8. AZATHIOPRINE. [Suspect]
     Active Substance: AZATHIOPRINE
     Dosage: , 3-0-0-0,
     Route: 048

REACTIONS (7)
  - General physical health deterioration [Unknown]
  - Weight decreased [Unknown]
  - Cough [Unknown]
  - Cytomegalovirus infection [Unknown]
  - Dyspnoea [Unknown]
  - Pyrexia [Unknown]
  - Fatigue [Unknown]
